FAERS Safety Report 4330309-1 (Version None)
Quarter: 2004Q1

REPORT INFORMATION
  Report Type: 
  Country: None (occurrence: None)
  Receive Date: 20040329
  Receipt Date: 20040315
  Transmission Date: 20041129
  Serious: Yes (Hospitalization, Other)
  Sender: FDA-Public Use
  Company Number: 2004017368

PATIENT
  Age: 80 Year
  Sex: Female

DRUGS (10)
  1. ZITHROMAX [Suspect]
     Indication: PYREXIA
     Dosage: 500 MG (DAILY), ORAL
     Route: 048
     Dates: start: 20040202, end: 20040204
  2. CEFDINIR (CEFDINIR) [Concomitant]
  3. ACETAMINOPHEN [Concomitant]
  4. SOLITA-T3 INJECTION (SODIUM LACTATE, POTASSIUM CHLORIDE, SODIUM CHLORI [Concomitant]
  5. CLINDAMYCIN HCL [Concomitant]
  6. PYRIDOXAL [Concomitant]
  7. SERRAPEPTASE (SERRAPEPTASE) [Concomitant]
  8. EPRAZINONE HYDROCHLORIDE (EPRAZINONE HYDROCHLORIDE) [Concomitant]
  9. MARZULENE S (LEVOGLUTAMIDE, SODIUM GUALENATE) [Concomitant]
  10. DICLOFENAC SODIUM [Concomitant]

REACTIONS (10)
  - BLOOD POTASSIUM DECREASED [None]
  - C-REACTIVE PROTEIN INCREASED [None]
  - CHILLS [None]
  - DIALYSIS [None]
  - HAEMOGLOBIN DECREASED [None]
  - HEADACHE [None]
  - NAUSEA [None]
  - RENAL FAILURE ACUTE [None]
  - VOMITING [None]
  - WHITE BLOOD CELL COUNT INCREASED [None]
